FAERS Safety Report 7824114-9 (Version None)
Quarter: 2011Q4

REPORT INFORMATION
  Report Type: 
  Country: None (occurrence: None)
  Receive Date: 20111019
  Receipt Date: 20111013
  Transmission Date: 20120403
  Serious: Yes (Other)
  Sender: FDA-Public Use
  Company Number: DE-SANOFI-AVENTIS-2011SA067114

PATIENT
  Sex: Male

DRUGS (4)
  1. MULTAQ [Suspect]
     Indication: ATRIAL FIBRILLATION
     Route: 048
     Dates: start: 20110101
  2. MULTAQ [Suspect]
     Indication: ATRIAL FLUTTER
     Route: 048
     Dates: start: 20110101
  3. BETA BLOCKING AGENTS [Concomitant]
     Indication: ATRIAL FLUTTER
     Route: 065
  4. BETA BLOCKING AGENTS [Concomitant]
     Indication: ATRIAL FIBRILLATION
     Route: 065

REACTIONS (1)
  - ATRIAL FIBRILLATION [None]
